FAERS Safety Report 6672240-2 (Version None)
Quarter: 2010Q2

REPORT INFORMATION
  Report Type: 
  Country: None (occurrence: None)
  Receive Date: 20100408
  Receipt Date: 20100331
  Transmission Date: 20101027
  Serious: Yes (Hospitalization)
  Sender: FDA-Public Use
  Company Number: US-BIOGENIDEC-2010BI009148

PATIENT
  Age: 57 Year
  Sex: Female

DRUGS (13)
  1. TYSABRI [Suspect]
     Indication: MULTIPLE SCLEROSIS
     Route: 042
     Dates: start: 20080916
  2. TYSABRI [Suspect]
     Route: 042
     Dates: start: 20080916
  3. DIOVAN [Concomitant]
  4. PROTONIX [Concomitant]
  5. FEXOFENADINE [Concomitant]
  6. WELLBUTRIN [Concomitant]
  7. ASPIRIN [Concomitant]
  8. LEVOTHYROXINE SODIUM [Concomitant]
  9. METOPROLOL TARTRATE [Concomitant]
  10. ADDERALL 30 [Concomitant]
  11. SIMVASTATIN [Concomitant]
  12. CALCITONIN [Concomitant]
  13. ALPRAZOLAM [Concomitant]

REACTIONS (2)
  - BLOOD PRESSURE INCREASED [None]
  - DIARRHOEA [None]
